FAERS Safety Report 4421723-4 (Version None)
Quarter: 2004Q3

REPORT INFORMATION
  Report Type: 
  Country: None (occurrence: None)
  Receive Date: 20040804
  Receipt Date: 20040727
  Transmission Date: 20050211
  Serious: Yes (Death)
  Sender: FDA-Public Use
  Company Number: 163-20785-04050003

PATIENT
  Age: 78 Year
  Sex: Male

DRUGS (1)
  1. THALOMID [Suspect]
     Indication: MYELODYSPLASTIC SYNDROME
     Dosage: 400 MG, DAILY, ORAL
     Route: 048
     Dates: start: 20040210, end: 20040323

REACTIONS (2)
  - ACUTE MYELOID LEUKAEMIA [None]
  - DISEASE PROGRESSION [None]
